FAERS Safety Report 18997775 (Version 1)
Quarter: 2021Q1

REPORT INFORMATION
  Report Type: Spontaneous
  Country: ZA (occurrence: ZA)
  Receive Date: 20210311
  Receipt Date: 20210311
  Transmission Date: 20210420
  Serious: Yes (Other)
  Sender: FDA-Public Use
  Company Number: ZA-SA-2021SA075788

PATIENT
  Sex: Male
  Weight: 78 kg

DRUGS (4)
  1. SULFASALAZINE. [Suspect]
     Active Substance: SULFASALAZINE
     Dosage: 30 MG (SULPHASALAZINE 1G)
     Dates: start: 2013
  2. METHOTREXATE. [Suspect]
     Active Substance: METHOTREXATE
     Indication: RHEUMATOID ARTHRITIS
     Dosage: METHOTREXATE 30MG
     Dates: start: 201302
  3. LEFLUNOMIDE. [Suspect]
     Active Substance: LEFLUNOMIDE
     Dosage: 200 MG (LEFLUNOMIDE 30 MG)
  4. CHLOROQUINE. [Suspect]
     Active Substance: CHLOROQUINE
     Indication: RHEUMATOID ARTHRITIS
     Dosage: 30 MG (CHLOROQUINE 200MG)
     Dates: start: 201302, end: 202002

REACTIONS (2)
  - Necrotising scleritis [Unknown]
  - Episcleritis [Unknown]
